FAERS Safety Report 4853524-7 (Version None)
Quarter: 2005Q4

REPORT INFORMATION
  Report Type: 
  Country: None (occurrence: None)
  Receive Date: 20051129
  Receipt Date: 20050923
  Transmission Date: 20060501
  Serious: No
  Sender: FDA-Public Use
  Company Number: WAES 0509USA03630

PATIENT
  Age: 50 Year
  Sex: Female

DRUGS (7)
  1. ZETIA [Suspect]
     Indication: BLOOD CHOLESTEROL INCREASED
     Dosage: 10 MG/DAILY/PO
     Route: 048
     Dates: start: 20050826
  2. KLONOPIN [Concomitant]
  3. PRILOSEC [Concomitant]
  4. TOPAMAX [Concomitant]
  5. ACETAZOLAMIDE [Concomitant]
  6. METFORMIN [Concomitant]
  7. NITROFURANTOIN [Concomitant]

REACTIONS (1)
  - BLOOD GLUCOSE INCREASED [None]
